FAERS Safety Report 19069424 (Version 3)
Quarter: 2021Q2

REPORT INFORMATION
  Report Type: Spontaneous
  Country: JP (occurrence: JP)
  Receive Date: 20210329
  Receipt Date: 20210430
  Transmission Date: 20210717
  Serious: Yes (Hospitalization)
  Sender: FDA-Public Use
  Company Number: JP-ELI_LILLY_AND_COMPANY-JP202103008874

PATIENT
  Age: 72 Year
  Sex: Male

DRUGS (2)
  1. CYRAMZA [Suspect]
     Active Substance: RAMUCIRUMAB
     Indication: LUNG NEOPLASM MALIGNANT
     Dosage: 550 MG, OTHER
     Route: 041
     Dates: start: 20200415, end: 20210208
  2. DOCETAXEL. [Concomitant]
     Active Substance: DOCETAXEL
     Indication: LUNG NEOPLASM MALIGNANT
     Dosage: 90 MG, OTHER
     Route: 041
     Dates: start: 20200415, end: 20210208

REACTIONS (1)
  - Incision site impaired healing [Recovering/Resolving]

NARRATIVE: CASE EVENT DATE: 20210301
